FAERS Safety Report 9191453 (Version 1)
Quarter: 2013Q1

REPORT INFORMATION
  Report Type: Spontaneous
  Country: US (occurrence: US)
  Receive Date: 20130326
  Receipt Date: 20130326
  Transmission Date: 20140127
  Serious: Yes (Other)
  Sender: FDA-Public Use
  Company Number: US-ACTAVIS-2013-04744

PATIENT
  Age: 11 Year
  Sex: Male

DRUGS (5)
  1. CLONIDINE [Suspect]
     Indication: ENDOCRINE TEST
     Dosage: 5 ?G/KG, UNKNOWN
     Route: 065
  2. ARGININE [Suspect]
     Indication: ENDOCRINE TEST
     Dosage: 5 ML/KG OVER 45 MINUTES
     Route: 042
  3. METHYLPHENIDATE [Concomitant]
     Indication: ATTENTION DEFICIT/HYPERACTIVITY DISORDER
     Dosage: UNKNOWN
     Route: 065
  4. VALSARTAN [Concomitant]
     Indication: CARDIAC DISORDER
     Dosage: 40 MG, DAILY
     Route: 065
  5. CYPROHEPTADINE                     /00042702/ [Concomitant]
     Indication: APPETITE DISORDER
     Dosage: 2 MG, BID
     Route: 065

REACTIONS (2)
  - Haematuria [Recovered/Resolved]
  - Hypotension [Recovered/Resolved]
